FAERS Safety Report 20119034 (Version 1)
Quarter: 2021Q4

REPORT INFORMATION
  Report Type: Spontaneous
  Country: US (occurrence: US)
  Receive Date: 20211126
  Receipt Date: 20211126
  Transmission Date: 20220303
  Serious: No
  Sender: FDA-Public Use
  Company Number: US-MYLANLABS-2021M1087486

PATIENT
  Age: 88 Year
  Sex: Female
  Weight: 66.22 kg

DRUGS (2)
  1. EPINEPHRINE [Suspect]
     Active Substance: EPINEPHRINE
     Indication: Product used for unknown indication
     Dosage: UNK
  2. BENADRYL                           /00000402/ [Concomitant]
     Dosage: UNK
     Route: 042

REACTIONS (1)
  - Off label use [Unknown]
